FAERS Safety Report 16423407 (Version 1)
Quarter: 2019Q2

REPORT INFORMATION
  Report Type: Spontaneous
  Country: ES (occurrence: ES)
  Receive Date: 20190612
  Receipt Date: 20190612
  Transmission Date: 20190711
  Serious: Yes (Life-Threatening)
  Sender: FDA-Public Use
  Company Number: PHHY2019ES135521

PATIENT
  Age: 15 Day
  Sex: Male
  Weight: 3 kg

DRUGS (1)
  1. AMOXICILLIN + CLAVULANATE POTASSIUM [Suspect]
     Active Substance: AMOXICILLIN\CLAVULANATE POTASSIUM
     Indication: FURUNCLE
     Dosage: 23 MG, TOTAL
     Route: 042
     Dates: start: 20190517, end: 20190517

REACTIONS (4)
  - Bradycardia [Recovered/Resolved]
  - Depressed mood [Recovered/Resolved]
  - Hypotension [Recovered/Resolved]
  - Irritability [Recovered/Resolved]

NARRATIVE: CASE EVENT DATE: 20190517
